FAERS Safety Report 6818919 (Version 4)
Quarter: 2020Q4

REPORT INFORMATION
  Report Type: Spontaneous
  Country: TR (occurrence: TR)
  Receive Date: 20081121
  Receipt Date: 20201125
  Transmission Date: 20210114
  Serious: Yes (Other)
  Sender: FDA-Public Use
  Company Number: TR-PFIZER INC-2008097081

PATIENT
  Age: 68 Year
  Sex: Male

DRUGS (2)
  1. LATANOPROST. [Suspect]
     Active Substance: LATANOPROST
     Dosage: BOTH EYES AT NIGHT
     Dates: start: 2003
  2. DORZOLAMIDE [Concomitant]
     Active Substance: DORZOLAMIDE
     Dosage: THREE TIMES DAILY IN BOTH EYES.

REACTIONS (2)
  - Macular detachment [Recovered/Resolved]
  - Cystoid macular oedema [Recovered/Resolved]
